FAERS Safety Report 4873011-X (Version None)
Quarter: 2006Q1

REPORT INFORMATION
  Report Type: 
  Country: None (occurrence: None)
  Receive Date: 20060105
  Receipt Date: 20051229
  Transmission Date: 20060701
  Serious: Yes (Other)
  Sender: FDA-Public Use
  Company Number: US-KINGPHARMUSA00001-K200501652

PATIENT

DRUGS (1)
  1. COLY-MYCIN M PARENTERAL [Suspect]
     Indication: PNEUMONIA

REACTIONS (1)
  - DEAFNESS [None]
